FAERS Safety Report 7729165-0 (Version None)
Quarter: 2011Q3

REPORT INFORMATION
  Report Type: 
  Country: None (occurrence: None)
  Receive Date: 20110906
  Receipt Date: 20110830
  Transmission Date: 20111222
  Serious: No
  Sender: FDA-Public Use
  Company Number: US-PFIZER INC-2011203161

PATIENT
  Sex: Male

DRUGS (2)
  1. CLINDAMYCIN PHOSPHATE AND TRETINOIN [Concomitant]
     Indication: ACNE
     Dosage: UNK
     Dates: start: 20110301
  2. DOXYCYCLINE HYCLATE [Suspect]
     Indication: ACNE
     Dosage: UNK
     Dates: start: 20100101

REACTIONS (1)
  - DRUG INEFFECTIVE [None]
